FAERS Safety Report 5019026-2 (Version None)
Quarter: 2006Q2

REPORT INFORMATION
  Report Type: 
  Country: None (occurrence: None)
  Receive Date: 20060530
  Receipt Date: 20060525
  Transmission Date: 20061013
  Serious: Yes (Hospitalization)
  Sender: FDA-Public Use
  Company Number: PERC20060014

PATIENT
  Age: 29 Year
  Sex: Male
  Weight: 92.9874 kg

DRUGS (6)
  1. PERCOCET [Suspect]
     Indication: PAIN
     Dosage: 1 TAB QID PO
     Route: 048
     Dates: start: 20040101, end: 20060209
  2. TRICOR [Concomitant]
  3. TOPROL-XL [Concomitant]
  4. LEXAPRO [Concomitant]
  5. NEXIUM [Concomitant]
  6. IBUPROFEN [Concomitant]

REACTIONS (7)
  - ABDOMINAL PAIN UPPER [None]
  - DRUG DEPENDENCE [None]
  - DRUG WITHDRAWAL SYNDROME [None]
  - FEELING JITTERY [None]
  - GASTRITIS [None]
  - HAEMATEMESIS [None]
  - MENTAL DISORDER [None]
